FAERS Safety Report 15607432 (Version 1)
Quarter: 2018Q4

REPORT INFORMATION
  Report Type: Spontaneous
  Country: CO (occurrence: CO)
  Receive Date: 20181112
  Receipt Date: 20181112
  Transmission Date: 20190205
  Serious: Yes (Other)
  Sender: FDA-Public Use
  Company Number: CO-MYLANLABS-2018M1084624

PATIENT
  Sex: Female

DRUGS (7)
  1. CYCLOSPORIN [Suspect]
     Active Substance: CYCLOSPORINE
     Indication: VERNAL KERATOCONJUNCTIVITIS
     Route: 047
  2. TACROLIMUS. [Suspect]
     Active Substance: TACROLIMUS
     Indication: VERNAL KERATOCONJUNCTIVITIS
     Route: 061
  3. TACROLIMUS. [Suspect]
     Active Substance: TACROLIMUS
     Indication: PRURITUS
  4. FLUTICASONE. [Concomitant]
     Active Substance: FLUTICASONE
     Indication: RHINITIS
     Route: 045
  5. CYCLOSPORIN [Suspect]
     Active Substance: CYCLOSPORINE
     Indication: OCULAR HYPERAEMIA
  6. TACROLIMUS. [Suspect]
     Active Substance: TACROLIMUS
     Indication: OCULAR HYPERAEMIA
  7. CYCLOSPORIN [Suspect]
     Active Substance: CYCLOSPORINE
     Indication: PRURITUS

REACTIONS (1)
  - Drug ineffective [Unknown]
